FAERS Safety Report 10629053 (Version 1)
Quarter: 2014Q4

REPORT INFORMATION
  Report Type: Spontaneous
  Country: US (occurrence: US)
  Receive Date: 20141205
  Receipt Date: 20141205
  Transmission Date: 20150529
  Serious: Yes (Other)
  Sender: FDA-Public Use
  Company Number: US-BRISTOL-MYERS SQUIBB COMPANY-21313382

PATIENT
  Age: 58 Year
  Sex: Female

DRUGS (4)
  1. ABILIFY [Suspect]
     Active Substance: ARIPIPRAZOLE
     Dosage: AUG13: INCREASED TO 10MG;DROPPED TO ABILIFY 5MG
     Dates: start: 201306, end: 2013
  2. GABAPENTIN. [Concomitant]
     Active Substance: GABAPENTIN
  3. PRISTIQ EXTENDED RELEASE [Concomitant]
     Active Substance: DESVENLAFAXINE SUCCINATE
  4. REMERON [Concomitant]
     Active Substance: MIRTAZAPINE

REACTIONS (2)
  - Anxiety [Unknown]
  - Tardive dyskinesia [Unknown]

NARRATIVE: CASE EVENT DATE: 2013
